FAERS Safety Report 20669329 (Version 1)
Quarter: 2022Q2

REPORT INFORMATION
  Report Type: Spontaneous
  Country: US (occurrence: US)
  Receive Date: 20220404
  Receipt Date: 20220404
  Transmission Date: 20220721
  Serious: Yes (Death)
  Sender: FDA-Public Use
  Company Number: US-Adamas_Pharmaceuticals-USA-POI1235202200031

PATIENT
  Age: 68 Year
  Sex: Female

DRUGS (2)
  1. OSMOLEX ER [Suspect]
     Active Substance: AMANTADINE
     Indication: Extrapyramidal disorder
     Dates: start: 202107
  2. OSMOLEX ER [Suspect]
     Active Substance: AMANTADINE
     Indication: Dyskinesia
     Dates: start: 202003, end: 202004

REACTIONS (2)
  - Death [Fatal]
  - Dyskinesia [Unknown]

NARRATIVE: CASE EVENT DATE: 20210101
